FAERS Safety Report 7126647-X (Version None)
Quarter: 2010Q4

REPORT INFORMATION
  Report Type: 
  Country: None (occurrence: None)
  Receive Date: 20101129
  Receipt Date: 20101116
  Transmission Date: 20110411
  Serious: Yes (Hospitalization, Other)
  Sender: FDA-Public Use
  Company Number: PHHY2010JP58070

PATIENT
  Age: 78 Year
  Sex: Male
  Weight: 39 kg

DRUGS (3)
  1. GLIVEC [Suspect]
     Indication: CHRONIC MYELOID LEUKAEMIA
     Dosage: 400 MG DAILY
     Route: 048
     Dates: start: 20090401
  2. GLIVEC [Suspect]
     Dosage: 200 MG DAILY
     Route: 048
  3. TS 1 [Concomitant]

REACTIONS (9)
  - BLOOD ALKALINE PHOSPHATASE DECREASED [None]
  - BLOOD LACTATE DEHYDROGENASE INCREASED [None]
  - DECREASED APPETITE [None]
  - EYELID OEDEMA [None]
  - MARROW HYPERPLASIA [None]
  - PERFORMANCE STATUS DECREASED [None]
  - PLATELET COUNT DECREASED [None]
  - RASH GENERALISED [None]
  - THROMBOCYTOPENIA [None]
